FAERS Safety Report 24018301 (Version 2)
Quarter: 2024Q2

REPORT INFORMATION
  Report Type: Spontaneous
  Country: US (occurrence: US)
  Receive Date: 20240627
  Receipt Date: 20240627
  Transmission Date: 20240716
  Serious: Yes (Hospitalization)
  Sender: FDA-Public Use
  Company Number: US-ROCHE-10000006802

PATIENT
  Sex: Male
  Weight: 124.28 kg

DRUGS (1)
  1. EVRYSDI [Suspect]
     Active Substance: RISDIPLAM
     Indication: Spinal muscular atrophy
     Dosage: 80 MG BOTTLE. DOSE IS 6.6ML
     Route: 048
     Dates: start: 202208

REACTIONS (10)
  - Incorrect dose administered [Unknown]
  - Product administration error [Unknown]
  - Nausea [Unknown]
  - Vomiting [Unknown]
  - Product dose omission issue [Unknown]
  - Femur fracture [Not Recovered/Not Resolved]
  - Abdominal distension [Unknown]
  - Pain [Unknown]
  - Muscular weakness [Unknown]
  - Fall [Unknown]
